FAERS Safety Report 6824500-X (Version None)
Quarter: 2010Q3

REPORT INFORMATION
  Report Type: 
  Country: None (occurrence: None)
  Receive Date: 20100708
  Receipt Date: 20061031
  Transmission Date: 20110219
  Serious: No
  Sender: FDA-Public Use
  Company Number: US-PFIZER INC-2006133865

PATIENT
  Sex: Female
  Weight: 65.77 kg

DRUGS (13)
  1. CHANTIX [Suspect]
     Indication: SMOKING CESSATION THERAPY
     Dates: start: 20061020
  2. LANOXIN [Concomitant]
  3. NADOLOL [Concomitant]
  4. ZOCOR [Concomitant]
  5. DILTIAZEM [Concomitant]
  6. HYZAAR [Concomitant]
  7. PROTONIX [Concomitant]
  8. ACETYLSALICYLIC ACID [Concomitant]
  9. MINERAL OIL [Concomitant]
  10. FISH OIL [Concomitant]
  11. FOLIC ACID [Concomitant]
  12. VITAMIN E [Concomitant]
  13. GLUCOSAMINE [Concomitant]

REACTIONS (1)
  - DIARRHOEA [None]
